FAERS Safety Report 25888228 (Version 1)
Quarter: 2025Q4

REPORT INFORMATION
  Report Type: Spontaneous
  Country: US (occurrence: US)
  Receive Date: 20251007
  Receipt Date: 20251007
  Transmission Date: 20260118
  Serious: No
  Sender: NUVATION BIO
  Company Number: US-NUVATION BIO INC.-2025NUV000106

PATIENT
  Sex: Male

DRUGS (2)
  1. IBTROZI [Suspect]
     Active Substance: TALETRECTINIB ADIPATE
     Indication: Non-small cell lung cancer
     Dosage: 600 MG, QD
  2. IBTROZI [Suspect]
     Active Substance: TALETRECTINIB ADIPATE
     Dosage: UNK UNK, QD

REACTIONS (1)
  - Neuropathy peripheral [Not Recovered/Not Resolved]
